FAERS Safety Report 8632555 (Version 2)
Quarter: 2014Q1

REPORT INFORMATION
  Report Type: Spontaneous
  Country: US (occurrence: US)
  Receive Date: 20120625
  Receipt Date: 20140221
  Transmission Date: 20141002
  Serious: Yes (Disabling, Congenital Anomaly, Other)
  Sender: FDA-Public Use
  Company Number: US-PFIZER INC-2012148590

PATIENT
  Age: 1 Day
  Sex: Male

DRUGS (14)
  1. ZOLOFT [Suspect]
     Indication: POSTPARTUM DEPRESSION
     Dosage: 50 MG, 1X/DAY
     Route: 064
     Dates: start: 200106, end: 20041003
  2. TUMS [Concomitant]
     Indication: GASTROOESOPHAGEAL REFLUX DISEASE
     Dosage: UNK, AS NEEDED
     Route: 064
  3. TYLENOL [Concomitant]
     Indication: PAIN
     Dosage: UNK, AS NEEDED
     Route: 064
  4. ZANTAC [Concomitant]
     Indication: GASTROOESOPHAGEAL REFLUX DISEASE
     Dosage: 300 MG, 1X/DAY (AS NEEDED)
     Route: 064
  5. MAALOX [Concomitant]
     Indication: GASTROOESOPHAGEAL REFLUX DISEASE
     Dosage: UNK, AS NEEDED
     Route: 064
  6. ADVIL [Concomitant]
     Dosage: UNK
     Route: 064
  7. VENTOLIN [Concomitant]
     Indication: ASTHMA
     Dosage: 1 TO 2 PUFFS EVERY 4 TO 6 HOURS AS NEEDED
     Route: 064
     Dates: start: 2001
  8. PRENATAL VITAMINS [Concomitant]
     Dosage: UNK, DAILY
     Route: 064
     Dates: start: 200309, end: 20041003
  9. BONINE [Concomitant]
     Indication: NAUSEA
     Dosage: UNK, AS NEEDED
     Route: 064
     Dates: start: 20040409
  10. ROBITUSSIN-DM [Concomitant]
     Indication: COUGH
     Dosage: UNK, AS NEEDED
     Route: 064
     Dates: start: 20040625
  11. PROTONIX [Concomitant]
     Indication: GASTROOESOPHAGEAL REFLUX DISEASE
     Dosage: 40 MG, 1X/DAY
     Route: 064
     Dates: start: 20040709
  12. BENADRYL [Concomitant]
     Indication: INSOMNIA
     Dosage: 50 MG, 1X/DAY (AT BEDTIME)
     Route: 064
     Dates: start: 20040722
  13. MACROBID [Concomitant]
     Indication: URINARY TRACT INFECTION
     Dosage: 1 DF, 2X/DAY
     Route: 064
     Dates: start: 20040823, end: 20040830
  14. PYRIDIUM [Concomitant]
     Indication: URINARY TRACT INFECTION
     Dosage: 100 MG, 3X/DAY (AS NEEDED)
     Route: 064
     Dates: start: 20040823, end: 20040827

REACTIONS (5)
  - Maternal exposure during pregnancy [Unknown]
  - Ventricular septal defect [Unknown]
  - Cardiac failure congestive [Unknown]
  - Congenital anomaly [Unknown]
  - Autism [Unknown]
